FAERS Safety Report 5443347-2 (Version None)
Quarter: 2007Q3

REPORT INFORMATION
  Report Type: 
  Country: None (occurrence: None)
  Receive Date: 20070730
  Receipt Date: 20070124
  Transmission Date: 20080115
  Serious: Yes (Other)
  Sender: FDA-Public Use
  Company Number: 234918

PATIENT
  Sex: Female

DRUGS (10)
  1. RITUXAN [Suspect]
     Indication: CHRONIC LYMPHOCYTIC LEUKAEMIA
     Dosage: 750 MG, 1/WEEK, INTRAVENOUS
     Route: 042
     Dates: start: 20070104
  2. ESTRADIOL [Concomitant]
  3. SYNTHROID [Concomitant]
  4. ALEVE [Concomitant]
  5. VYTORIN [Concomitant]
  6. PRILOSEC [Concomitant]
  7. TYLENOL (CAPLET) [Concomitant]
  8. BENADRYL [Concomitant]
  9. ACIDOPHILUS (LACTOBACILLUS ACIDOPHILUS) [Concomitant]
  10. DECADRON [Concomitant]

REACTIONS (1)
  - ANAPHYLACTIC REACTION [None]
